FAERS Safety Report 4690194-5 (Version None)
Quarter: 2005Q2

REPORT INFORMATION
  Report Type: 
  Country: None (occurrence: None)
  Receive Date: 20050613
  Receipt Date: 20050527
  Transmission Date: 20051028
  Serious: Yes (Other)
  Sender: FDA-Public Use
  Company Number: 212672

PATIENT
  Age: 40 Year
  Sex: Female
  Weight: 97 kg

DRUGS (1)
  1. HERCEPTIN [Suspect]
     Indication: BREAST CANCER METASTATIC
     Dosage: 6 MG/KG, Q3W, INTRAVENOUS
     Route: 042
     Dates: start: 20030827, end: 20050216

REACTIONS (5)
  - ABORTION MISSED [None]
  - ABORTION SPONTANEOUS [None]
  - DRUG EXPOSURE DURING PREGNANCY [None]
  - OVARIAN CYST [None]
  - PREGNANCY [None]
